FAERS Safety Report 5869100-3 (Version None)
Quarter: 2008Q3

REPORT INFORMATION
  Report Type: 
  Country: None (occurrence: None)
  Receive Date: 20080903
  Receipt Date: 20080822
  Transmission Date: 20090109
  Serious: Yes (Hospitalization)
  Sender: FDA-Public Use
  Company Number: JP-SANOFI-SYNTHELABO-A01200712978

PATIENT
  Sex: Male
  Weight: 51 kg

DRUGS (6)
  1. MAGNESIUM OXIDE [Concomitant]
     Indication: CONSTIPATION
     Route: 048
     Dates: start: 20070620, end: 20071217
  2. ISOVORIN [Concomitant]
     Route: 041
     Dates: start: 20070628, end: 20070629
  3. FLUOROURACIL [Suspect]
     Dosage: 600MG/BODY (394.7 MG/M2) IN BOLUS THEN 900MG/BODY (592.1 MG/M2) AS INFUSION
     Route: 040
     Dates: start: 20070628, end: 20070628
  4. FLUOROURACIL [Suspect]
     Route: 041
     Dates: start: 20070628, end: 20070629
  5. ELPLAT [Suspect]
     Indication: LARGE INTESTINE CARCINOMA
     Route: 041
     Dates: start: 20070628, end: 20070628
  6. BUP-4 [Concomitant]
     Indication: DYSURIA
     Route: 048
     Dates: start: 20070716, end: 20071217

REACTIONS (1)
  - ALTERED STATE OF CONSCIOUSNESS [None]
